FAERS Safety Report 5649023-5 (Version None)
Quarter: 2008Q1

REPORT INFORMATION
  Report Type: 
  Country: None (occurrence: None)
  Receive Date: 20080131
  Receipt Date: 20071204
  Transmission Date: 20080703
  Serious: No
  Sender: FDA-Public Use
  Company Number: US200712000995

PATIENT
  Age: 63 Year
  Sex: Male

DRUGS (3)
  1. BYETTA [Suspect]
     Indication: TYPE 2 DIABETES MELLITUS
     Dosage: 5 UG, 2/D, SUBCUTANEOUS
     Route: 058
     Dates: start: 20071130
  2. METFORMIN HCL [Concomitant]
  3. DRUG USED IN DIABETES [Concomitant]

REACTIONS (6)
  - ABDOMINAL DISTENSION [None]
  - DRUG EFFECT DECREASED [None]
  - FEELING HOT [None]
  - INJECTION SITE EXTRAVASATION [None]
  - INJECTION SITE HAEMORRHAGE [None]
  - NAUSEA [None]
